FAERS Safety Report 22715206 (Version 3)
Quarter: 2024Q1

REPORT INFORMATION
  Report Type: Report from Study
  Country: CA (occurrence: CA)
  Receive Date: 20230718
  Receipt Date: 20240107
  Transmission Date: 20240410
  Serious: Yes (Other)
  Sender: FDA-Public Use
  Company Number: CA-JNJFOC-20221135700

PATIENT
  Age: 25 Year
  Sex: Male
  Weight: 52 kg

DRUGS (3)
  1. REMICADE [Suspect]
     Active Substance: INFLIXIMAB
     Indication: Colitis ulcerative
     Dosage: THERAPY START DATE GIVEN AS 10/NOV/2022 3 INDUCTION DOSES
     Route: 041
     Dates: start: 20220929
  2. REMICADE [Suspect]
     Active Substance: INFLIXIMAB
     Dosage: THERAPY START DATE WAS ALSO REPORTED AS 06-APR-2023?VIAL ROUNDED UP. DOSE: 600MG?IV RELOADING ORDERE
     Route: 041
     Dates: start: 20221115
  3. MONOFERRIC [Concomitant]
     Active Substance: FERRIC DERISOMALTOSE
     Indication: Product used for unknown indication
     Dosage: 1 INFUSION OF MONOFERRIC (IRON)
     Route: 065
     Dates: start: 2023

REACTIONS (5)
  - Cytomegalovirus colitis [Unknown]
  - Colitis ulcerative [Not Recovered/Not Resolved]
  - Drug level decreased [Recovering/Resolving]
  - Drug ineffective [Unknown]
  - Off label use [Unknown]

NARRATIVE: CASE EVENT DATE: 20220101
